FAERS Safety Report 23948927 (Version 1)
Quarter: 2024Q2

REPORT INFORMATION
  Report Type: Spontaneous
  Country: US (occurrence: US)
  Receive Date: 20240607
  Receipt Date: 20240607
  Transmission Date: 20240715
  Serious: Yes (Hospitalization)
  Sender: FDA-Public Use
  Company Number: US-TEVA-VS-3205207

PATIENT
  Sex: Male

DRUGS (1)
  1. UZEDY [Suspect]
     Active Substance: RISPERIDONE
     Indication: Product used for unknown indication
     Route: 065
     Dates: start: 202404

REACTIONS (6)
  - Paranoia [Not Recovered/Not Resolved]
  - Injection site mass [Unknown]
  - Injection site erythema [Unknown]
  - Anxiety [Unknown]
  - Feeling abnormal [Unknown]
  - Restlessness [Unknown]

NARRATIVE: CASE EVENT DATE: 20240101
